FAERS Safety Report 9136672 (Version 1)
Quarter: 2013Q1

REPORT INFORMATION
  Report Type: Spontaneous
  Country: US (occurrence: US)
  Receive Date: 20130304
  Receipt Date: 20130304
  Transmission Date: 20140127
  Serious: No
  Sender: FDA-Public Use
  Company Number: US-ABBOTT-12P-163-0957406-00

PATIENT
  Sex: Male
  Weight: 78.54 kg

DRUGS (5)
  1. ANDROGEL 1% [Suspect]
     Indication: BLOOD TESTOSTERONE DECREASED
     Dosage: 2-3 PUMPS DAILY
     Dates: start: 201203, end: 201204
  2. ANDROGEL 1% [Suspect]
     Dosage: 5 PUMPS DAILY
     Dates: end: 20120711
  3. ANDROGEL 1.62% [Suspect]
     Indication: BLOOD TESTOSTERONE DECREASED
     Dosage: 2-3 PUMPS DAILY
     Dates: start: 201204, end: 201208
  4. FLOMAX [Concomitant]
     Indication: PRODUCT USED FOR UNKNOWN INDICATION
  5. ZOVIRAX [Concomitant]
     Indication: PRODUCT USED FOR UNKNOWN INDICATION

REACTIONS (3)
  - Incorrect dose administered [Unknown]
  - Drug ineffective [Not Recovered/Not Resolved]
  - Drug administered at inappropriate site [Unknown]
